FAERS Safety Report 7110251-3 (Version None)
Quarter: 2010Q4

REPORT INFORMATION
  Report Type: 
  Country: None (occurrence: None)
  Receive Date: 20101112
  Receipt Date: 20101027
  Transmission Date: 20110411
  Serious: Yes (Hospitalization)
  Sender: FDA-Public Use
  Company Number: 1-17245470

PATIENT
  Age: 44 Year
  Sex: Female
  Weight: 95.2554 kg

DRUGS (5)
  1. QUALAQUIN [Suspect]
     Indication: MUSCLE SPASMS
     Dosage: ORAL
     Route: 048
     Dates: start: 20060815
  2. PRILOSEC (OMEPRAZOLE) [Concomitant]
  3. DYAZIDE (TRIAMTERENE AND HYDROCHLOROTHIAZIDE) [Concomitant]
  4. CLARITIN [Concomitant]
  5. PROVENTIL-HFA [Concomitant]

REACTIONS (7)
  - ARTHRITIS [None]
  - COAGULOPATHY [None]
  - DRUG HYPERSENSITIVITY [None]
  - HAEMORRHAGIC DISORDER [None]
  - IDIOPATHIC THROMBOCYTOPENIC PURPURA [None]
  - INTERVERTEBRAL DISC PROTRUSION [None]
  - PAIN [None]
